FAERS Safety Report 5186727-5 (Version None)
Quarter: 2006Q4

REPORT INFORMATION
  Report Type: 
  Country: None (occurrence: None)
  Receive Date: 20061211
  Receipt Date: 20061130
  Transmission Date: 20070319
  Serious: Yes (Death)
  Sender: FDA-Public Use
  Company Number: M2006-023A

PATIENT
  Sex: Female

DRUGS (4)
  1. MITE D FARINAE STD GLY 10K AU/ML HOLLIST-STIER [Suspect]
     Indication: HYPERSENSITIVITY
     Dosage: 0.5 ML INJECTION
  2. MITE D FARINAE STD GLY 10K AU/ML HOLLIST-STIER [Suspect]
     Indication: HYPERSENSITIVITY
     Dosage: 0.5 ML INJECTION
  3. MITE D PTERONYSSINU STD GLY 10K AU/ML HOLLIST-STIER [Suspect]
     Indication: HYPERSENSITIVITY
     Dosage: 0.5 ML INJECTION
  4. MITE D PTERONYSSINU STD GLY 10K AU/ML HOLLIST-STIER [Suspect]
     Indication: HYPERSENSITIVITY
     Dosage: 0.5 ML INJECTION

REACTIONS (4)
  - ADVERSE DRUG REACTION [None]
  - DRUG DOSE OMISSION [None]
  - PHARMACEUTICAL PRODUCT COMPLAINT [None]
  - TREATMENT NONCOMPLIANCE [None]
